FAERS Safety Report 5598441-2 (Version None)
Quarter: 2007Q4

REPORT INFORMATION
  Report Type: 
  Country: None (occurrence: None)
  Receive Date: 20071226
  Receipt Date: 20070901
  Transmission Date: 20080405
  Serious: No
  Sender: FDA-Public Use
  Company Number: 2007PV033392

PATIENT
  Age: 54 Year
  Sex: Female
  Weight: 90.2658 kg

DRUGS (6)
  1. SYMLIN [Suspect]
     Indication: TYPE 2 DIABETES MELLITUS
     Dosage: 180, 120 MCG, TID, SC
     Route: 058
     Dates: start: 20070103, end: 20070831
  2. SYMLIN [Suspect]
     Indication: TYPE 2 DIABETES MELLITUS
     Dosage: 180, 120 MCG, TID, SC
     Route: 058
     Dates: start: 20070831
  3. SYNTHROID [Concomitant]
  4. APIDRA [Concomitant]
  5. LANTUS [Concomitant]
  6. ASPIRIN [Concomitant]

REACTIONS (5)
  - FEELING HOT [None]
  - HYPOAESTHESIA [None]
  - PAIN [None]
  - PARAESTHESIA [None]
  - WEIGHT INCREASED [None]
